FAERS Safety Report 7296146-3 (Version None)
Quarter: 2011Q1

REPORT INFORMATION
  Report Type: 
  Country: None (occurrence: None)
  Receive Date: 20110216
  Receipt Date: 20110209
  Transmission Date: 20110831
  Serious: Yes (Death, Other)
  Sender: FDA-Public Use
  Company Number: ID-ROCHE-753030

PATIENT
  Age: 14 Year
  Sex: Female

DRUGS (6)
  1. OSELTAMIVIR [Suspect]
     Route: 065
     Dates: start: 20090121, end: 20090121
  2. METHYLPREDNISOLONE [Concomitant]
     Dates: start: 20090120, end: 20090121
  3. CEFTRIAXONE SODIUM [Suspect]
     Route: 065
     Dates: start: 20090120
  4. AMPICILLIN AND SULBACTAM [Concomitant]
     Dates: start: 20090120
  5. OSELTAMIVIR [Suspect]
     Indication: AVIAN INFLUENZA
     Route: 065
     Dates: start: 20090120, end: 20090120
  6. CEFUROXIME [Concomitant]
     Dates: start: 20090120

REACTIONS (2)
  - ACUTE RESPIRATORY DISTRESS SYNDROME [None]
  - PNEUMONIA [None]
